APPROVED DRUG PRODUCT: TOPROL-XL
Active Ingredient: METOPROLOL SUCCINATE
Strength: EQ 100MG TARTRATE
Dosage Form/Route: TABLET, EXTENDED RELEASE;ORAL
Application: N019962 | Product #002 | TE Code: AB
Applicant: MELINTA THERAPEUTICS LLC A WHOLLY OWNED SUB OF CORMEDIX INC
Approved: Jan 10, 1992 | RLD: Yes | RS: No | Type: RX